FAERS Safety Report 4853185-7 (Version None)
Quarter: 2005Q4

REPORT INFORMATION
  Report Type: 
  Country: None (occurrence: None)
  Receive Date: 20051214
  Receipt Date: 20051121
  Transmission Date: 20060501
  Serious: Yes (Life-Threatening)
  Sender: FDA-Public Use
  Company Number: NO-ROCHE-428092

PATIENT
  Age: 45 Year
  Sex: Male

DRUGS (6)
  1. RIVOTRIL [Suspect]
     Indication: ANXIETY
     Dosage: ON 18 OCTOBER 2005 THE PATIENT TOOK 1.5 MG DURING 9 HOURS IN TWO DIFFERENT DOSES.
     Route: 048
     Dates: start: 20051018
  2. ABILIFY [Interacting]
     Route: 048
     Dates: start: 20051018, end: 20051018
  3. TRILAFON [Interacting]
     Route: 048
     Dates: end: 20051017
  4. TRILAFON [Interacting]
     Route: 048
     Dates: start: 20051018, end: 20051018
  5. XANOR [Interacting]
     Route: 048
  6. XANOR [Interacting]
     Route: 048
     Dates: start: 20051018, end: 20051018

REACTIONS (5)
  - DIZZINESS [None]
  - DRUG INTERACTION [None]
  - FATIGUE [None]
  - SYNCOPE [None]
  - VISION BLURRED [None]
